FAERS Safety Report 8784834 (Version 1)
Quarter: 2012Q4

REPORT INFORMATION
  Report Type: 
  Country: DE (occurrence: DE)
  Receive Date: 20120914
  Receipt Date: 20120914
  Transmission Date: 20130627
  Serious: Yes (Hospitalization)
  Sender: FDA-Public Use
  Company Number: DE-PFIZER INC-2012224079

PATIENT
  Age: 62 Year
  Sex: Female
  Weight: 61 kg

DRUGS (11)
  1. GENOTROPIN [Suspect]
     Indication: HYPOPITUITARISM
     Dosage: 0.6 mg, 1x/day (7 injection/week)
     Route: 058
     Dates: start: 20000127
  2. PRESOMEN [Concomitant]
     Indication: BLOOD LUTEINISING HORMONE DECREASED
     Dosage: UNK
     Dates: start: 19951201
  3. PRESOMEN [Concomitant]
     Indication: BLOOD FOLLICLE STIMULATING HORMONE DECREASED
  4. PRESOMEN [Concomitant]
     Indication: HYPOGONADISM FEMALE
  5. DESMOPRESSIN ACETATE [Concomitant]
     Indication: BLOOD ANTIDIURETIC HORMONE DECREASED
     Dosage: UNK
     Dates: start: 19980417
  6. HYDROCORTISONE [Concomitant]
     Indication: BLOOD CORTICOTROPHIN DECREASED
     Dosage: UNK
     Dates: start: 19980417
  7. MINIRIN [Concomitant]
     Indication: BLOOD ANTIDIURETIC HORMONE DECREASED
     Dosage: UNK
     Dates: start: 19980420
  8. EFEROX ^EFEKA^ [Concomitant]
     Dosage: UNK
     Dates: start: 19991015
  9. DHEA [Concomitant]
     Dosage: UNK
     Dates: start: 20000127
  10. EFFEXOR [Concomitant]
     Indication: BLOOD THYROID STIMULATING HORMONE DECREASED
     Dosage: UNK
     Dates: start: 20010626
  11. EFFEXOR [Concomitant]
     Indication: PRIMARY HYPOTHYROIDISM

REACTIONS (1)
  - Arthropathy [Unknown]
